FAERS Safety Report 8094956-6 (Version None)
Quarter: 2012Q1

REPORT INFORMATION
  Report Type: 
  Country: None (occurrence: None)
  Receive Date: 20120131
  Receipt Date: 20120118
  Transmission Date: 20120608
  Serious: No
  Sender: FDA-Public Use
  Company Number: US-ABBOTT-12P-163-0895360-00

PATIENT
  Sex: Female
  Weight: 48.124 kg

DRUGS (7)
  1. CREON [Suspect]
     Indication: PANCREATIC ENZYMES DECREASED
     Dates: start: 20110701
  2. CALCIUM [Concomitant]
     Indication: MINERAL SUPPLEMENTATION
  3. FISH OIL [Concomitant]
     Indication: MEDICAL DIET
  4. SULAR [Concomitant]
     Indication: HYPERTENSION
  5. MULTI-VITAMIN [Concomitant]
     Indication: VITAMIN SUPPLEMENTATION
  6. ASCORBIC ACID [Concomitant]
     Indication: VITAMIN SUPPLEMENTATION
  7. SYNTHROID [Concomitant]
     Indication: HYPOTHYROIDISM

REACTIONS (1)
  - DRUG INEFFECTIVE [None]
